FAERS Safety Report 9507243 (Version 1)
Quarter: 2013Q1

REPORT INFORMATION
  Report Type: Spontaneous
  Country: US (occurrence: None)
  Receive Date: 20130301
  Receipt Date: 20130301
  Transmission Date: 20140127
  Serious: Yes (Other)
  Sender: FDA-Public Use
  Company Number: RB-40822-2012

PATIENT
  Sex: Male

DRUGS (2)
  1. SUBOXONE [Suspect]
     Indication: DRUG DEPENDENCE
     Dates: start: 2011, end: 201110
  2. SUBUTEX [Suspect]
     Dates: start: 201110, end: 20120426

REACTIONS (2)
  - Drug withdrawal syndrome neonatal [None]
  - Foetal exposure during pregnancy [None]
